FAERS Safety Report 13303183 (Version 2)
Quarter: 2017Q2

REPORT INFORMATION
  Report Type: Spontaneous
  Country: BR (occurrence: BR)
  Receive Date: 20170307
  Receipt Date: 20170630
  Transmission Date: 20170830
  Serious: Yes (Death, Hospitalization, Other)
  Sender: FDA-Public Use
  Company Number: BR-ALEXION PHARMACEUTICALS INC.-A201702257

PATIENT
  Age: 42 Year
  Sex: Male

DRUGS (2)
  1. SOLIRIS [Suspect]
     Active Substance: ECULIZUMAB
     Dosage: 1200 MG, Q2W
     Route: 042
  2. SOLIRIS [Suspect]
     Active Substance: ECULIZUMAB
     Indication: HAEMOLYTIC URAEMIC SYNDROME
     Dosage: 900 MG, QW
     Route: 042
     Dates: start: 20170105

REACTIONS (8)
  - Cardio-respiratory arrest [Fatal]
  - Peripheral swelling [Unknown]
  - Back pain [Unknown]
  - Chest pain [Unknown]
  - Renal transplant failure [Unknown]
  - Hypertension [Unknown]
  - Abdominal distension [Unknown]
  - Abasia [Unknown]

NARRATIVE: CASE EVENT DATE: 20170225
